FAERS Safety Report 8007753-4 (Version None)
Quarter: 2011Q4

REPORT INFORMATION
  Report Type: 
  Country: None (occurrence: None)
  Receive Date: 20111222
  Receipt Date: 20111222
  Transmission Date: 20120403
  Serious: Yes (Hospitalization)
  Sender: FDA-Public Use
  Company Number: None

PATIENT
  Age: 49 Year
  Sex: Male

DRUGS (6)
  1. KALETRA [Concomitant]
  2. XANAX [Concomitant]
  3. OLANZAPINE [Concomitant]
  4. ZIDOVUDINE [Suspect]
     Indication: HIV INFECTION
     Dosage: 300MG BID PO YEARS
     Route: 048
  5. VIREAD [Concomitant]
  6. COMBIVIR [Concomitant]

REACTIONS (3)
  - ANAEMIA [None]
  - GASTROINTESTINAL HAEMORRHAGE [None]
  - ANAEMIA MACROCYTIC [None]
